FAERS Safety Report 22274084 (Version 1)
Quarter: 2023Q2

REPORT INFORMATION
  Report Type: Spontaneous
  Country: US (occurrence: US)
  Receive Date: 20230502
  Receipt Date: 20230502
  Transmission Date: 20230722
  Serious: No
  Sender: FDA-Public Use
  Company Number: US-TAKEDA-2023TUS040288

PATIENT
  Sex: Female

DRUGS (1)
  1. CUVITRU [Suspect]
     Active Substance: HUMAN IMMUNOGLOBULIN G
     Indication: Immunodeficiency
     Dosage: UNK
     Route: 058

REACTIONS (6)
  - Illness [Unknown]
  - Viral infection [Unknown]
  - Oesophageal disorder [Unknown]
  - Decreased immune responsiveness [Unknown]
  - Cough [Unknown]
  - Tremor [Unknown]
